FAERS Safety Report 7213681-4 (Version None)
Quarter: 2010Q4

REPORT INFORMATION
  Report Type: 
  Country: None (occurrence: None)
  Receive Date: 20101126
  Receipt Date: 20091109
  Transmission Date: 20110411
  Serious: Yes (Other)
  Sender: FDA-Public Use
  Company Number: WAES 0911USA01849

PATIENT
  Age: 86 Year
  Sex: Male

DRUGS (1)
  1. FOSAMAX [Suspect]
     Indication: OSTEOPOROSIS
     Dosage: 70 MG/PO
     Route: 048
     Dates: start: 20050302, end: 20070622

REACTIONS (5)
  - EDENTULOUS [None]
  - GINGIVAL BLEEDING [None]
  - OSTEITIS DEFORMANS [None]
  - OSTEONECROSIS OF JAW [None]
  - TOOTH DISORDER [None]
